FAERS Safety Report 9854700 (Version 1)
Quarter: 2014Q1

REPORT INFORMATION
  Report Type: Spontaneous
  Country: US (occurrence: US)
  Receive Date: 20140130
  Receipt Date: 20140130
  Transmission Date: 20141002
  Serious: Yes (Hospitalization)
  Sender: FDA-Public Use
  Company Number: US-AMGEN-USASP2014005963

PATIENT
  Age: 43 Year
  Sex: 0

DRUGS (1)
  1. ENBREL [Suspect]
     Indication: PSORIATIC ARTHROPATHY
     Dosage: 50 MG, QWK
     Route: 065
     Dates: start: 201303

REACTIONS (6)
  - Impaired healing [Unknown]
  - Localised infection [Unknown]
  - Injection site injury [Recovered/Resolved]
  - Wrong technique in drug usage process [Recovered/Resolved]
  - Biopsy muscle [Recovered/Resolved]
  - Muscle enzyme increased [Unknown]
